FAERS Safety Report 4507407-2 (Version None)
Quarter: 2004Q4

REPORT INFORMATION
  Report Type: 
  Country: None (occurrence: None)
  Receive Date: 20041118
  Receipt Date: 20041105
  Transmission Date: 20050328
  Serious: Yes (Hospitalization, Other)
  Sender: FDA-Public Use
  Company Number: 2004087438

PATIENT
  Sex: Male
  Weight: 62.1428 kg

DRUGS (4)
  1. GEODON [Suspect]
     Indication: MAJOR DEPRESSION
     Dosage: 80 MG (20 MG, 4 IN 1 D), ORAL
     Route: 048
     Dates: end: 20041101
  2. LORAZEPAM [Suspect]
     Indication: ILL-DEFINED DISORDER
     Dosage: 2 MG (1 MG, 2 IN 1 D),
     Dates: end: 20041001
  3. CITALOPRAM HYDROBROMIDE [Concomitant]
  4. NORMENSAL (ETHINYLESTRADIOL, NORETHISTERONE) [Concomitant]

REACTIONS (18)
  - AGGRESSION [None]
  - ALANINE AMINOTRANSFERASE INCREASED [None]
  - ASPARTATE AMINOTRANSFERASE INCREASED [None]
  - DELUSION [None]
  - DRUG EFFECT DECREASED [None]
  - DRUG INEFFECTIVE [None]
  - FEAR [None]
  - HEART RATE INCREASED [None]
  - HEART RATE IRREGULAR [None]
  - HYPERSOMNIA [None]
  - LACRIMATION INCREASED [None]
  - MEDICATION ERROR [None]
  - MYDRIASIS [None]
  - PANIC DISORDER [None]
  - PARANOIA [None]
  - PHARMACEUTICAL PRODUCT COMPLAINT [None]
  - SOMNOLENCE [None]
  - YAWNING [None]
